FAERS Safety Report 6344289-0 (Version None)
Quarter: 2009Q3

REPORT INFORMATION
  Report Type: 
  Country: None (occurrence: None)
  Receive Date: 20090903
  Receipt Date: 20090812
  Transmission Date: 20100115
  Serious: Yes (Disabling)
  Sender: FDA-Public Use
  Company Number: 062750-2009-00010

PATIENT
  Age: 69 Year
  Weight: 79.3795 kg

DRUGS (2)
  1. ZICAM  ALLERGY RELIEF SWABS [Suspect]
     Indication: NASOPHARYNGITIS
     Dosage: BID, 1-2 DAYS AT A TIME
     Dates: start: 20081218, end: 20090201
  2. ^CARDIS^ [Concomitant]

REACTIONS (4)
  - ANOSMIA [None]
  - DYSGEUSIA [None]
  - HYPOACUSIS [None]
  - NASAL MUCOSAL DISORDER [None]
